FAERS Safety Report 5654927-3 (Version None)
Quarter: 2008Q1

REPORT INFORMATION
  Report Type: 
  Country: None (occurrence: None)
  Receive Date: 20080307
  Receipt Date: 20071022
  Transmission Date: 20080703
  Serious: No
  Sender: FDA-Public Use
  Company Number: A0680918A

PATIENT
  Age: 59 Year
  Sex: Female

DRUGS (3)
  1. REQUIP [Suspect]
     Indication: PARKINSON'S DISEASE
     Dosage: 2MG THREE TIMES PER DAY
     Route: 048
     Dates: start: 19990101
  2. L-DOPA [Concomitant]
  3. ULTRAM [Concomitant]

REACTIONS (1)
  - PATHOLOGICAL GAMBLING [None]
